FAERS Safety Report 13741707 (Version 1)
Quarter: 2017Q3

REPORT INFORMATION
  Report Type: Spontaneous
  Country: US (occurrence: US)
  Receive Date: 20170711
  Receipt Date: 20170711
  Transmission Date: 20171127
  Serious: No
  Sender: FDA-Public Use
  Company Number: US-PFIZER INC-2017298626

PATIENT
  Age: 47 Year
  Sex: Male
  Weight: 104.33 kg

DRUGS (1)
  1. VIAGRA [Suspect]
     Active Substance: SILDENAFIL CITRATE
     Indication: ERECTILE DYSFUNCTION
     Dosage: 25 MG, DAILY (ONE TIME AT NIGHT)
     Dates: start: 201703

REACTIONS (2)
  - Ejaculation disorder [Not Recovered/Not Resolved]
  - Erection increased [Not Recovered/Not Resolved]

NARRATIVE: CASE EVENT DATE: 201704
